FAERS Safety Report 24530749 (Version 1)
Quarter: 2024Q4

REPORT INFORMATION
  Report Type: Spontaneous
  Country: US (occurrence: US)
  Receive Date: 20241021
  Receipt Date: 20241021
  Transmission Date: 20250115
  Serious: No
  Sender: ELI LILLY AND COMPANY
  Company Number: US-ELI_LILLY_AND_COMPANY-US202410013428

PATIENT
  Age: 61 Year
  Sex: Female

DRUGS (3)
  1. INSULIN LISPRO [Suspect]
     Active Substance: INSULIN LISPRO
     Indication: Type 1 diabetes mellitus
     Dosage: 5 U, UNKNOWN
     Route: 058
     Dates: start: 2019
  2. INSULIN LISPRO [Suspect]
     Active Substance: INSULIN LISPRO
     Dosage: 5 U, UNKNOWN
     Route: 058
     Dates: start: 2019
  3. INSULIN LISPRO [Suspect]
     Active Substance: INSULIN LISPRO
     Dosage: 5 U, UNKNOWN
     Route: 058
     Dates: start: 2019

REACTIONS (3)
  - Blood glucose abnormal [Unknown]
  - Scar [Unknown]
  - Product storage error [Unknown]
